FAERS Safety Report 23640708 (Version 2)
Quarter: 2024Q2

REPORT INFORMATION
  Report Type: Spontaneous
  Country: AU (occurrence: AU)
  Receive Date: 20240318
  Receipt Date: 20240529
  Transmission Date: 20240715
  Serious: Yes (Hospitalization)
  Sender: FDA-Public Use
  Company Number: AU-BEH-2024169516

PATIENT
  Age: 78 Year
  Sex: Male
  Weight: 92.4 kg

DRUGS (2)
  1. HUMAN IMMUNOGLOBULIN G [Suspect]
     Active Substance: HUMAN IMMUNOGLOBULIN G
     Indication: Lymphoplasmacytoid lymphoma/immunocytoma
     Dosage: 40 GRAM
     Route: 042
     Dates: start: 20240305, end: 20240305
  2. OXYGEN [Concomitant]
     Active Substance: OXYGEN
     Dosage: 2 LITER PER MIN

REACTIONS (2)
  - Dyspnoea [Recovering/Resolving]
  - Oxygen saturation decreased [Recovering/Resolving]

NARRATIVE: CASE EVENT DATE: 20240305
